FAERS Safety Report 18941307 (Version 1)
Quarter: 2021Q1

REPORT INFORMATION
  Report Type: Spontaneous
  Country: US (occurrence: US)
  Receive Date: 20210225
  Receipt Date: 20210225
  Transmission Date: 20210420
  Serious: No
  Sender: FDA-Public Use
  Company Number: US-AMNEAL PHARMACEUTICALS-2020-AMRX-01170

PATIENT
  Sex: Female

DRUGS (1)
  1. URSODIOL. [Suspect]
     Active Substance: URSODIOL
     Indication: BILIARY CIRRHOSIS
     Dosage: UNK
     Route: 065
     Dates: start: 2013

REACTIONS (3)
  - Rash erythematous [Unknown]
  - Rash pruritic [Unknown]
  - Nausea [Unknown]
